FAERS Safety Report 23141371 (Version 2)
Quarter: 2023Q4

REPORT INFORMATION
  Report Type: Spontaneous
  Country: US (occurrence: US)
  Receive Date: 20231103
  Receipt Date: 20231201
  Transmission Date: 20240110
  Serious: Yes (Other)
  Sender: FDA-Public Use
  Company Number: US-APOTEX-2023AP016184

PATIENT
  Age: 36 Year
  Sex: Female

DRUGS (1)
  1. DESMOPRESSIN [Suspect]
     Active Substance: DESMOPRESSIN
     Indication: Diabetes insipidus
     Dosage: 3 DOSAGE FORM, QD
     Route: 045
     Dates: start: 2023

REACTIONS (5)
  - Seizure [Unknown]
  - Condition aggravated [Unknown]
  - Urinary tract infection [Unknown]
  - Blood sodium abnormal [Unknown]
  - Drug ineffective [Unknown]

NARRATIVE: CASE EVENT DATE: 20230101
